FAERS Safety Report 24390075 (Version 2)
Quarter: 2024Q4

REPORT INFORMATION
  Report Type: Report from Study
  Country: CA (occurrence: CA)
  Receive Date: 20241003
  Receipt Date: 20241029
  Transmission Date: 20250115
  Serious: Yes (Other)
  Sender: REGENERON
  Company Number: CA-BAYER-2024A136742

PATIENT
  Sex: Female

DRUGS (1)
  1. EYLEA [Suspect]
     Active Substance: AFLIBERCEPT
     Indication: Age-related macular degeneration
     Dosage: UNK; RIGHT EYE, SOLUTION FOR INJECTION
     Dates: start: 20240916

REACTIONS (2)
  - Blindness unilateral [Not Recovered/Not Resolved]
  - Eye infection [Recovered/Resolved]
